FAERS Safety Report 9535492 (Version 6)
Quarter: 2014Q1

REPORT INFORMATION
  Report Type: Report from Study
  Country: DE (occurrence: DE)
  Receive Date: 20130918
  Receipt Date: 20140312
  Transmission Date: 20141002
  Serious: Yes (Hospitalization)
  Sender: FDA-Public Use
  Company Number: DE-ROCHE-1037520

PATIENT
  Age: 82 Year
  Sex: Female
  Weight: 69 kg

DRUGS (13)
  1. VISMODEGIB [Suspect]
     Indication: BASAL CELL CARCINOMA
     Dosage: DATE OF LAST DOSE PRIOR TO ONSET OF SPINALIOMA UNDER LIP: 30/JAN/2012?DATE OF LAST DOSE PRIOR TO ONS
     Route: 048
     Dates: start: 20111223, end: 20120413
  2. IMUREK [Concomitant]
     Indication: MYASTHENIA GRAVIS
     Route: 065
     Dates: start: 200301
  3. MESTINON [Concomitant]
     Indication: MYASTHENIA GRAVIS
     Route: 065
     Dates: start: 200301
  4. VALORON N [Concomitant]
     Indication: PAIN
     Route: 065
     Dates: start: 200901
  5. OMEPRAZOL [Concomitant]
     Indication: PROPHYLAXIS
     Route: 065
     Dates: start: 200901
  6. SILYMARIN [Concomitant]
     Route: 065
     Dates: start: 200901
  7. XELEVIA [Concomitant]
     Indication: DIABETES MELLITUS
     Route: 065
     Dates: start: 201109
  8. CRANOC [Concomitant]
     Indication: BLOOD CHOLESTEROL INCREASED
     Route: 065
     Dates: start: 200901
  9. COAPROVEL [Concomitant]
     Indication: HYPERTENSION
     Route: 065
     Dates: start: 201110
  10. CARMEN (GERMANY) [Concomitant]
     Indication: HYPERTENSION
     Route: 065
     Dates: start: 201110
  11. VERTIGOHEEL [Concomitant]
     Route: 065
     Dates: start: 200901
  12. TOREM [Concomitant]
     Indication: HYPERTENSION
     Route: 065
     Dates: start: 20120206
  13. METOHEXAL (GERMANY) [Concomitant]
     Indication: HYPERTENSION
     Route: 065
     Dates: start: 20120206

REACTIONS (2)
  - Lip squamous cell carcinoma [Recovered/Resolved]
  - Squamous cell carcinoma [Recovered/Resolved]
